FAERS Safety Report 25089843 (Version 1)
Quarter: 2025Q1

REPORT INFORMATION
  Report Type: Spontaneous
  Country: GR (occurrence: GR)
  Receive Date: 20250318
  Receipt Date: 20250318
  Transmission Date: 20250408
  Serious: No
  Sender: PFIZER
  Company Number: GR-PFIZER INC-PV202500030681

PATIENT
  Age: 9 Year
  Sex: Male
  Weight: 27 kg

DRUGS (4)
  1. GENOTROPIN [Suspect]
     Active Substance: SOMATROPIN
     Indication: Hypopituitarism
     Route: 058
     Dates: start: 202401
  2. ARIMIDEX [Concomitant]
     Active Substance: ANASTROZOLE
     Indication: Osteoporosis
     Dosage: EVERY MORNING
  3. D3 FIX [Concomitant]
     Indication: Osteoporosis
  4. JWH-018 [Concomitant]
     Active Substance: JWH-018
     Indication: Osteoporosis

REACTIONS (3)
  - Device breakage [Unknown]
  - Device difficult to use [Unknown]
  - Device use error [Unknown]

NARRATIVE: CASE EVENT DATE: 20240101
